FAERS Safety Report 14456776 (Version 1)
Quarter: 2018Q1

REPORT INFORMATION
  Report Type: Spontaneous
  Country: US (occurrence: US)
  Receive Date: 20180129
  Receipt Date: 20180129
  Transmission Date: 20180509
  Serious: Yes (Life-Threatening)
  Sender: FDA-Public Use
  Company Number: None

PATIENT
  Age: 65 Year
  Sex: Male
  Weight: 78 kg

DRUGS (1)
  1. EXPAREL [Suspect]
     Active Substance: BUPIVACAINE
     Indication: NERVE BLOCK
     Dosage: IV INFUSION FOR 20 MINS AFTER LIDOCAINE
     Route: 042
     Dates: start: 20171012

REACTIONS (5)
  - Ventricular extrasystoles [None]
  - Sinus arrest [None]
  - Arrhythmia [None]
  - Tachycardia [None]
  - Electrocardiogram T wave inversion [None]

NARRATIVE: CASE EVENT DATE: 20171012
